FAERS Safety Report 8386154-3 (Version None)
Quarter: 2012Q2

REPORT INFORMATION
  Report Type: 
  Country: None (occurrence: None)
  Receive Date: 20120523
  Receipt Date: 20120511
  Transmission Date: 20120825
  Serious: Yes (Congenital Anomaly, Other)
  Sender: FDA-Public Use
  Company Number: AUR-APL-2011-05600

PATIENT
  Sex: Male
  Weight: 2.696 kg

DRUGS (6)
  1. NORVIR [Suspect]
     Indication: ANTIVIRAL TREATMENT
     Dosage: (200 MG, 11 D),TRANSPLACENTAL, (100 MG, 1 D),ORAL
     Route: 064
     Dates: start: 20110428, end: 20110518
  2. NORVIR [Suspect]
     Indication: ANTIVIRAL TREATMENT
     Dosage: (200 MG, 11 D),TRANSPLACENTAL, (100 MG, 1 D),ORAL
     Route: 064
     Dates: start: 20110519
  3. PREZISTA [Suspect]
     Indication: ANTIVIRAL TREATMENT
     Dosage: (800 MG, 1 D),TRANSPLACENTAL
     Route: 064
     Dates: start: 20110428
  4. COMBIVIR [Suspect]
     Indication: ANTIVIRAL TREATMENT
     Dosage: TRANSPLACENTAL
     Route: 064
     Dates: start: 20110421, end: 20110915
  5. ZIDOVUDINE [Suspect]
     Indication: ANTIVIRAL TREATMENT
     Dosage: 2 MG, 1 D),TRANSPLACENTAL
     Route: 064
     Dates: start: 20110915, end: 20110915
  6. KALETRA [Suspect]
     Indication: ANTIVIRAL TREATMENT
     Dosage: TRANSPLACENTAL
     Route: 064
     Dates: start: 20110421, end: 20110915

REACTIONS (3)
  - FOETAL GROWTH RESTRICTION [None]
  - PREMATURE BABY [None]
  - MATERNAL DRUGS AFFECTING FOETUS [None]
